FAERS Safety Report 5163889-7 (Version None)
Quarter: 2006Q4

REPORT INFORMATION
  Report Type: 
  Country: None (occurrence: None)
  Receive Date: 20061124
  Receipt Date: 20061113
  Transmission Date: 20070319
  Serious: Yes (Other)
  Sender: FDA-Public Use
  Company Number: 2006125139

PATIENT
  Age: 60 Year
  Sex: Female
  Weight: 72.5755 kg

DRUGS (12)
  1. ZOLOFT [Suspect]
     Indication: SYNCOPE VASOVAGAL
     Dosage: 100 MG (50 MG, 2 IN 1 D)
  2. CHANTIX [Suspect]
     Indication: SMOKING CESSATION THERAPY
     Dosage: 1 MG (0.5 MG, 2 IN 1 D), ORAL
     Route: 048
     Dates: start: 20060930, end: 20061008
  3. XANAX [Suspect]
     Indication: INSOMNIA
     Dosage: 1 MG (1 MG, 1 IN 1 D)
  4. PLAVIC (CLOPIDOGREL SULFATE) [Concomitant]
  5. TOPROL-XL [Concomitant]
  6. VERAPAMIL [Concomitant]
  7. HYDROCHLOROTHIAZIDE [Concomitant]
  8. MULTI-VITAMINS [Concomitant]
  9. POTASSIUM (POTASSIUM) [Concomitant]
  10. RESTORIL [Concomitant]
  11. ZETIA [Concomitant]
  12. REQUIP [Concomitant]

REACTIONS (6)
  - CONTUSION [None]
  - FALL [None]
  - JOINT INJURY [None]
  - SKELETAL INJURY [None]
  - SYNCOPE [None]
  - THERAPY NON-RESPONDER [None]
